FAERS Safety Report 8778087 (Version 1)
Quarter: 2012Q4

REPORT INFORMATION
  Report Type: 
  Country: US (occurrence: US)
  Receive Date: 20120912
  Receipt Date: 20120912
  Transmission Date: 20130627
  Serious: Yes (Other)
  Sender: FDA-Public Use
  Company Number: US-ELI_LILLY_AND_COMPANY-US201209001086

PATIENT
  Age: 65 Year
  Sex: Male

DRUGS (1)
  1. EFFIENT [Suspect]
     Indication: NO THERAPEUTIC RESPONSE
     Dosage: UNK
     Dates: start: 201202, end: 20120905

REACTIONS (3)
  - Cerebrovascular accident [Unknown]
  - Atrial thrombosis [Unknown]
  - Deep vein thrombosis [Unknown]
